FAERS Safety Report 13757202 (Version 1)
Quarter: 2017Q3

REPORT INFORMATION
  Report Type: Spontaneous
  Country: US (occurrence: US)
  Receive Date: 20170714
  Receipt Date: 20170714
  Transmission Date: 20171127
  Serious: Yes (Other)
  Sender: FDA-Public Use
  Company Number: None

PATIENT
  Age: 70 Year
  Sex: Female
  Weight: 75.6 kg

DRUGS (9)
  1. TESTOSTERONE. [Concomitant]
     Active Substance: TESTOSTERONE
  2. CENTRUM SILVER [Concomitant]
     Active Substance: MINERALS\VITAMINS
  3. LISINOPRIL 20 MG [Suspect]
     Active Substance: LISINOPRIL
     Indication: HYPERTENSION
     Dosage: ?          OTHER STRENGTH:MG/MG;QUANTITY:90 TABLET(S);?
     Route: 048
     Dates: start: 20170623, end: 20170625
  4. SYNTHROID [Concomitant]
     Active Substance: LEVOTHYROXINE SODIUM
  5. TYLENOL [Concomitant]
     Active Substance: ACETAMINOPHEN
  6. MENEST [Concomitant]
     Active Substance: ESTROGENS, ESTERIFIED
  7. CALCIUM [Concomitant]
     Active Substance: CALCIUM
  8. VITAMIN C [Concomitant]
     Active Substance: ASCORBIC ACID
  9. CRANBERRY CHEW [Concomitant]

REACTIONS (6)
  - Chest pain [None]
  - Manufacturing materials issue [None]
  - Blood pressure increased [None]
  - Cough [None]
  - Dizziness [None]
  - Product formulation issue [None]

NARRATIVE: CASE EVENT DATE: 20170625
